FAERS Safety Report 4692730-1 (Version None)
Quarter: 2005Q2

REPORT INFORMATION
  Report Type: 
  Country: None (occurrence: None)
  Receive Date: 20050617
  Receipt Date: 20050607
  Transmission Date: 20051028
  Serious: Yes (Other)
  Sender: FDA-Public Use
  Company Number: DEPFP-S-20030041

PATIENT
  Age: 67 Year
  Sex: Male

DRUGS (2)
  1. NAVELBINE [Suspect]
     Indication: OESOPHAGEAL ADENOCARCINOMA
     Dosage: 44MG PER DAY
     Route: 042
     Dates: start: 20030805, end: 20030805
  2. MCP [Concomitant]
     Route: 065

REACTIONS (5)
  - BACK PAIN [None]
  - BONE PAIN [None]
  - CHEST DISCOMFORT [None]
  - HEADACHE [None]
  - RESTLESSNESS [None]
